FAERS Safety Report 4687806-9 (Version None)
Quarter: 2005Q2

REPORT INFORMATION
  Report Type: 
  Country: None (occurrence: None)
  Receive Date: 20050610
  Receipt Date: 20050601
  Transmission Date: 20051028
  Serious: Yes (Other)
  Sender: FDA-Public Use
  Company Number: PHBS2005CZ07911

PATIENT
  Age: 74 Year
  Sex: Female

DRUGS (5)
  1. LESCOL XL [Suspect]
     Dosage: 80 MG, QD
     Route: 048
     Dates: start: 20050420, end: 20050516
  2. AGAPURIN [Concomitant]
  3. ANOPYRIN [Concomitant]
  4. ENELBIN [Concomitant]
  5. AMLODIPINE [Concomitant]

REACTIONS (3)
  - ALANINE AMINOTRANSFERASE INCREASED [None]
  - ASPARTATE AMINOTRANSFERASE INCREASED [None]
  - GANGRENE [None]
